FAERS Safety Report 10075568 (Version 2)
Quarter: 2014Q2

REPORT INFORMATION
  Report Type: Spontaneous
  Country: DE (occurrence: DE)
  Receive Date: 20140414
  Receipt Date: 20140425
  Transmission Date: 20141212
  Serious: Yes (Hospitalization, Other)
  Sender: FDA-Public Use
  Company Number: DE-JNJFOC-20140407146

PATIENT
  Age: 77 Year
  Sex: Male
  Weight: 80 kg

DRUGS (4)
  1. XARELTO [Suspect]
     Indication: CEREBROVASCULAR ACCIDENT PROPHYLAXIS
     Dosage: 20 (UNITS UNSPECIFIED)
     Route: 048
     Dates: start: 20130403, end: 20140218
  2. XARELTO [Suspect]
     Indication: ATRIAL FIBRILLATION
     Dosage: 20 (UNITS UNSPECIFIED)
     Route: 048
     Dates: start: 20130403, end: 20140218
  3. BISOPROLOL [Concomitant]
     Dosage: 5 (UNITS UNSPECIFIED)
     Route: 065
     Dates: start: 20130403
  4. KALIUM VERLA (POTASSIUM CITRATE) [Concomitant]
     Indication: ATRIAL FIBRILLATION
     Route: 065
     Dates: start: 20130403

REACTIONS (1)
  - Atrial thrombosis [Recovered/Resolved]
